FAERS Safety Report 15347390 (Version 2)
Quarter: 2019Q2

REPORT INFORMATION
  Report Type: Spontaneous
  Country: US (occurrence: US)
  Receive Date: 20180904
  Receipt Date: 20190417
  Transmission Date: 20190711
  Serious: No
  Sender: FDA-Public Use
  Company Number: US-SA-2018SA247210

PATIENT
  Sex: Female

DRUGS (1)
  1. KEVZARA [Suspect]
     Active Substance: SARILUMAB
     Indication: RHEUMATOID ARTHRITIS
     Dosage: 200 MG, QOW
     Route: 058
     Dates: start: 20181205

REACTIONS (6)
  - Pain [Unknown]
  - Injection site swelling [Unknown]
  - Injection site erythema [Unknown]
  - Influenza [Unknown]
  - Injection site bruising [Unknown]
  - Malaise [Unknown]
